FAERS Safety Report 13027014 (Version 2)
Quarter: 2017Q1

REPORT INFORMATION
  Report Type: Spontaneous
  Country: BR (occurrence: BR)
  Receive Date: 20161214
  Receipt Date: 20170104
  Transmission Date: 20170428
  Serious: Yes (Hospitalization, Other)
  Sender: FDA-Public Use
  Company Number: BR-ALEXION-A201609722

PATIENT
  Age: 8 Month
  Sex: Female
  Weight: 0 kg

DRUGS (2)
  1. KANUMA [Suspect]
     Active Substance: SEBELIPASE ALFA
     Indication: LYSOSOMAL ACID LIPASE DEFICIENCY
     Dosage: 3 MG/KG, QW
     Route: 042
     Dates: start: 20160307
  2. KANUMA [Suspect]
     Active Substance: SEBELIPASE ALFA
     Dosage: 5 MG/KG, Q2W
     Route: 042
     Dates: start: 20161014

REACTIONS (2)
  - Klebsiella bacteraemia [Unknown]
  - Pyrexia [Recovered/Resolved]

NARRATIVE: CASE EVENT DATE: 20161128
